FAERS Safety Report 13194704 (Version 1)
Quarter: 2017Q1

REPORT INFORMATION
  Report Type: Spontaneous
  Country: US (occurrence: US)
  Receive Date: 20170207
  Receipt Date: 20170207
  Transmission Date: 20170428
  Serious: No
  Sender: FDA-Public Use
  Company Number: US-JAZZ-2016-US-020227

PATIENT
  Sex: Male

DRUGS (1)
  1. PRIALT [Suspect]
     Active Substance: ZICONOTIDE ACETATE
     Indication: SPINAL PAIN
     Dosage: UNK ?G, QH
     Route: 037
     Dates: start: 20160929

REACTIONS (9)
  - Ocular hyperaemia [Unknown]
  - Swelling face [Unknown]
  - Paraesthesia [Unknown]
  - Device issue [Unknown]
  - Eye swelling [Unknown]
  - Gait disturbance [Unknown]
  - Nervousness [Unknown]
  - Malaise [Unknown]
  - Aphasia [Unknown]

NARRATIVE: CASE EVENT DATE: 201610
